FAERS Safety Report 24030507 (Version 2)
Quarter: 2024Q3

REPORT INFORMATION
  Report Type: Spontaneous
  Country: US (occurrence: US)
  Receive Date: 20240628
  Receipt Date: 20240709
  Transmission Date: 20241017
  Serious: Yes (Other)
  Sender: MYLAN
  Company Number: US-MYLANLABS-2024M1058386

PATIENT
  Sex: Female

DRUGS (1)
  1. BREYNA [Interacting]
     Active Substance: BUDESONIDE\FORMOTEROL FUMARATE
     Indication: Product used for unknown indication
     Dosage: UNK
     Route: 055

REACTIONS (6)
  - Dyspnoea exertional [Unknown]
  - Drug interaction [Unknown]
  - Cough [Unknown]
  - Device difficult to use [Unknown]
  - Product substitution issue [Unknown]
  - Device delivery system issue [Unknown]
